FAERS Safety Report 9181735 (Version 1)
Quarter: 2013Q1

REPORT INFORMATION
  Report Type: Spontaneous
  Country: US (occurrence: US)
  Receive Date: 20130322
  Receipt Date: 20130322
  Transmission Date: 20140127
  Serious: No
  Sender: FDA-Public Use
  Company Number: US-ROXANE LABORATORIES, INC.-2013-RO-00385RO

PATIENT
  Sex: Male

DRUGS (1)
  1. IRBESARTAN [Suspect]

REACTIONS (4)
  - Drug ineffective [Unknown]
  - Cough [Unknown]
  - Insomnia [Unknown]
  - Product quality issue [Unknown]
